FAERS Safety Report 15465346 (Version 1)
Quarter: 2018Q4

REPORT INFORMATION
  Report Type: Spontaneous
  Country: IE (occurrence: IE)
  Receive Date: 20181004
  Receipt Date: 20181004
  Transmission Date: 20190204
  Serious: Yes (Disabling)
  Sender: FDA-Public Use
  Company Number: IE-TEVA-2018-IE-960970

PATIENT
  Age: 37 Year
  Sex: Male

DRUGS (8)
  1. SERTRALINE (GENERIC) [Suspect]
     Active Substance: SERTRALINE HYDROCHLORIDE
     Indication: DEPRESSION
     Route: 065
     Dates: start: 20141104, end: 20180907
  2. MIRAP [Concomitant]
     Indication: DEPRESSION
     Dates: start: 20170724, end: 20180907
  3. QUETIAPINE (G) [Suspect]
     Active Substance: QUETIAPINE
     Indication: DEPRESSION
  4. AMITRIPTYLINE (GENERIC) [Concomitant]
     Indication: IRRITABLE BOWEL SYNDROME
  5. MIRAP [Concomitant]
     Indication: ANXIETY
  6. QUETIAPINE (G) [Suspect]
     Active Substance: QUETIAPINE
     Indication: ANXIETY
     Dosage: 25 MILLIGRAM DAILY;
     Route: 048
     Dates: start: 20141215, end: 20171215
  7. AMITRIPTYLINE (GENERIC) [Concomitant]
     Indication: INSOMNIA
     Dates: start: 20010112, end: 20151125
  8. SERTRALINE  (GENERIC) [Suspect]
     Active Substance: SERTRALINE HYDROCHLORIDE
     Indication: ANXIETY

REACTIONS (2)
  - Muscle twitching [Not Recovered/Not Resolved]
  - Tongue spasm [Not Recovered/Not Resolved]

NARRATIVE: CASE EVENT DATE: 20160107
